FAERS Safety Report 7718185-8 (Version None)
Quarter: 2011Q3

REPORT INFORMATION
  Report Type: 
  Country: None (occurrence: None)
  Receive Date: 20110830
  Receipt Date: 20110816
  Transmission Date: 20111222
  Serious: Yes (Other)
  Sender: FDA-Public Use
  Company Number: PHHY2011US76674

PATIENT

DRUGS (4)
  1. SIMULECT [Suspect]
     Indication: PROPHYLAXIS AGAINST TRANSPLANT REJECTION
     Dosage: 10 MG, UNK
     Route: 042
     Dates: start: 20091101
  2. METHYLPREDNISOLONE [Concomitant]
  3. SIMULECT [Suspect]
     Dosage: 10 MG, UNK
     Route: 042
     Dates: start: 20091105
  4. UNASYN [Concomitant]
     Route: 042

REACTIONS (4)
  - HEPATIC ARTERY THROMBOSIS [None]
  - PORTAL VEIN THROMBOSIS [None]
  - LIVER TRANSPLANT REJECTION [None]
  - HEPATIC CIRRHOSIS [None]
